FAERS Safety Report 16002103 (Version 1)
Quarter: 2019Q1

REPORT INFORMATION
  Report Type: Report from Study
  Country: None (occurrence: RO)
  Receive Date: 20190225
  Receipt Date: 20190225
  Transmission Date: 20190418
  Serious: Yes (Hospitalization)
  Sender: FDA-Public Use
  Company Number: RO-ABBVIE-19K-135-2676423-00

PATIENT
  Age: 49 Year
  Sex: Male

DRUGS (2)
  1. SPIRULINA [Concomitant]
     Active Substance: SPIRULINA
     Indication: IMMUNE SYSTEM DISORDER
     Dosage: CONSUMING SPIRULINA DURING ABBVIE THERAPY.
     Route: 048
  2. HUMIRA [Suspect]
     Active Substance: ADALIMUMAB
     Indication: PSORIASIS
     Route: 058
     Dates: start: 20140604, end: 20181215

REACTIONS (3)
  - Spinal column injury [Recovering/Resolving]
  - Dislocation of vertebra [Recovering/Resolving]
  - Fall [Recovering/Resolving]

NARRATIVE: CASE EVENT DATE: 201812
